FAERS Safety Report 8822719 (Version 2)
Quarter: 2015Q2

REPORT INFORMATION
  Report Type: Report from Study
  Country: US (occurrence: US)
  Receive Date: 20121003
  Receipt Date: 20150630
  Transmission Date: 20150821
  Serious: Yes (Death)
  Sender: FDA-Public Use
  Company Number: US-ROCHE-1123202

PATIENT
  Sex: Female

DRUGS (11)
  1. FLOLAN [Concomitant]
     Active Substance: EPOPROSTENOL SODIUM
     Route: 042
  2. PREVACID [Concomitant]
     Active Substance: LANSOPRAZOLE
     Dosage: 30MG/30ML PER PEG BID
     Route: 065
  3. RITUXAN [Suspect]
     Active Substance: RITUXIMAB
     Route: 042
  4. PREDNISONE. [Concomitant]
     Active Substance: PREDNISONE
     Dosage: FOR 2 DAYS
     Route: 048
  5. PREDNISONE. [Concomitant]
     Active Substance: PREDNISONE
     Dosage: FOR 2 DAYS
     Route: 048
  6. RITUXAN [Suspect]
     Active Substance: RITUXIMAB
     Indication: THROMBOCYTOPENIA
     Route: 042
     Dates: start: 20040302
  7. DECADRON [Concomitant]
     Active Substance: DEXAMETHASONE
  8. BENADRYL [Concomitant]
     Active Substance: DIPHENHYDRAMINE HYDROCHLORIDE
     Route: 065
  9. CARAFATE [Concomitant]
     Active Substance: SUCRALFATE
  10. PREDNISONE. [Concomitant]
     Active Substance: PREDNISONE
     Dosage: FOR 2 DAYS
     Route: 048
  11. TYLENOL [Concomitant]
     Active Substance: ACETAMINOPHEN
     Route: 048

REACTIONS (15)
  - Decreased appetite [Unknown]
  - Oesophageal carcinoma [Unknown]
  - Localised oedema [Unknown]
  - Oedema [Unknown]
  - Abdominal distension [Unknown]
  - Somnolence [Unknown]
  - Death [Fatal]
  - Hypokalaemia [Unknown]
  - Abdominal pain [Recovered/Resolved]
  - Dyspnoea [Unknown]
  - Lymphadenopathy [Unknown]
  - Diarrhoea [Recovered/Resolved]
  - Ascites [Unknown]
  - Peripheral swelling [Unknown]
  - Fatigue [Unknown]
